FAERS Safety Report 25838277 (Version 1)
Quarter: 2025Q3

REPORT INFORMATION
  Report Type: Report from Study
  Country: US (occurrence: US)
  Receive Date: 20250923
  Receipt Date: 20250923
  Transmission Date: 20251021
  Serious: Yes (Other)
  Sender: MYLAN
  Company Number: US-MYLANLABS-2025M1079940

PATIENT
  Age: 71 Year
  Sex: Female
  Weight: 74.84 kg

DRUGS (12)
  1. YUPELRI [Suspect]
     Active Substance: REVEFENACIN
     Indication: Chronic obstructive pulmonary disease
     Dosage: 175 PER 3 MICROGRAM PER MILLILITRE, QD (ONCE A DAY VIA NEBULIZER)
     Dates: start: 20250905, end: 20250916
  2. YUPELRI [Suspect]
     Active Substance: REVEFENACIN
     Dosage: 175 PER 3 MICROGRAM PER MILLILITRE, QD (ONCE A DAY VIA NEBULIZER)
     Route: 065
     Dates: start: 20250905, end: 20250916
  3. YUPELRI [Suspect]
     Active Substance: REVEFENACIN
     Dosage: 175 PER 3 MICROGRAM PER MILLILITRE, QD (ONCE A DAY VIA NEBULIZER)
     Route: 065
     Dates: start: 20250905, end: 20250916
  4. YUPELRI [Suspect]
     Active Substance: REVEFENACIN
     Dosage: 175 PER 3 MICROGRAM PER MILLILITRE, QD (ONCE A DAY VIA NEBULIZER)
     Dates: start: 20250905, end: 20250916
  5. ALBUTEROL [Concomitant]
     Active Substance: ALBUTEROL
  6. ALBUTEROL [Concomitant]
     Active Substance: ALBUTEROL
     Route: 065
  7. ALBUTEROL [Concomitant]
     Active Substance: ALBUTEROL
     Route: 065
  8. ALBUTEROL [Concomitant]
     Active Substance: ALBUTEROL
  9. OHTUVAYRE [Concomitant]
     Active Substance: ENSIFENTRINE
  10. OHTUVAYRE [Concomitant]
     Active Substance: ENSIFENTRINE
     Route: 065
  11. OHTUVAYRE [Concomitant]
     Active Substance: ENSIFENTRINE
     Route: 065
  12. OHTUVAYRE [Concomitant]
     Active Substance: ENSIFENTRINE

REACTIONS (2)
  - Cheilitis [Unknown]
  - Chapped lips [Unknown]

NARRATIVE: CASE EVENT DATE: 20250901
